FAERS Safety Report 9762130 (Version 1)
Quarter: 2013Q4

REPORT INFORMATION
  Report Type: Spontaneous
  Country: US (occurrence: US)
  Receive Date: 20131216
  Receipt Date: 20131216
  Transmission Date: 20140711
  Serious: No
  Sender: FDA-Public Use
  Company Number: US-BIOGENIDEC-2013BI103953

PATIENT
  Sex: Female

DRUGS (25)
  1. TECFIDERA [Suspect]
     Indication: MULTIPLE SCLEROSIS
     Route: 048
     Dates: start: 20131004
  2. TECFIDERA [Suspect]
     Indication: MULTIPLE SCLEROSIS
     Route: 048
     Dates: start: 20131004
  3. AMLODIPINE [Concomitant]
  4. AMOXICILLIN [Concomitant]
  5. BACLOFEN [Concomitant]
  6. BUPROPION HCL [Concomitant]
  7. CARBAMAZAPINE [Concomitant]
  8. CITALOPRAM [Concomitant]
  9. FISH OIL [Concomitant]
  10. FLONASE [Concomitant]
  11. FUROSEMIDE [Concomitant]
  12. LEVOTHYROXINE [Concomitant]
  13. LISINOPRIL [Concomitant]
  14. LOVASTATIN [Concomitant]
  15. NYSTATIN [Concomitant]
  16. OMEGA 3 [Concomitant]
  17. POTASSIUM CHLORIDE CR [Concomitant]
  18. PRILOSEC [Concomitant]
  19. PROPANOLOL HCL [Concomitant]
  20. TRAMADOL HCL [Concomitant]
  21. TRAZADONE HCL [Concomitant]
  22. TYLENOL [Concomitant]
  23. VITAMIN B12 [Concomitant]
  24. VITAMIN D3 [Concomitant]
  25. ZOLPIDEM TARTRATE [Concomitant]

REACTIONS (5)
  - Fatigue [Unknown]
  - Hypoaesthesia [Unknown]
  - Paraesthesia [Unknown]
  - Musculoskeletal stiffness [Unknown]
  - Gait disturbance [Unknown]
